FAERS Safety Report 6810954-1 (Version None)
Quarter: 2010Q2

REPORT INFORMATION
  Report Type: 
  Country: None (occurrence: None)
  Receive Date: 20100630
  Receipt Date: 20080923
  Transmission Date: 20101027
  Serious: No
  Sender: FDA-Public Use
  Company Number: US-PFIZER INC-2008080132

PATIENT
  Sex: Female

DRUGS (3)
  1. NICOTROL [Suspect]
  2. ACETAMINOPHEN [Concomitant]
  3. DIPHENHYDRAMINE [Concomitant]

REACTIONS (1)
  - DRUG SCREEN FALSE POSITIVE [None]
